FAERS Safety Report 8437852-4 (Version None)
Quarter: 2012Q2

REPORT INFORMATION
  Report Type: 
  Country: None (occurrence: None)
  Receive Date: 20120614
  Receipt Date: 20120518
  Transmission Date: 20120825
  Serious: No
  Sender: FDA-Public Use
  Company Number: US-AMGEN-USASP2012023442

PATIENT
  Age: 65 Year
  Sex: Female

DRUGS (12)
  1. FISH OIL [Concomitant]
  2. M.V.I. [Concomitant]
     Dosage: UNK UNK, QD
  3. VITAMIN D [Concomitant]
  4. GABAPENTIN [Concomitant]
  5. SINGULAIR [Concomitant]
     Dosage: UNK UNK, QD
  6. GAMMA AMINO BETA HYDROXYBUTYRIC ACID [Concomitant]
  7. DIM                                /03044901/ [Concomitant]
     Dosage: UNK UNK, QD
  8. CALCIUM MAGNESIUM [Concomitant]
  9. PYRIDACIL [Concomitant]
  10. KT [Concomitant]
     Dosage: UNK UNK, QD
  11. PROLIA [Suspect]
     Indication: OSTEOPOROSIS POSTMENOPAUSAL
     Dosage: UNK UNK, Q6MO
     Dates: start: 20110725
  12. GLUCOSAMINE [Concomitant]
     Dosage: UNK UNK, QD

REACTIONS (9)
  - NAUSEA [None]
  - INSOMNIA [None]
  - TRIGGER FINGER [None]
  - POLLAKIURIA [None]
  - PRURITUS [None]
  - OEDEMA PERIPHERAL [None]
  - BACK PAIN [None]
  - PAIN IN EXTREMITY [None]
  - ARTHRALGIA [None]
